FAERS Safety Report 17044590 (Version 1)
Quarter: 2019Q4

REPORT INFORMATION
  Report Type: Spontaneous
  Country: US (occurrence: US)
  Receive Date: 20191017
  Receipt Date: 20191017
  Transmission Date: 20200122
  Serious: Yes (Life-Threatening)
  Sender: FDA-Public Use
  Company Number: None

PATIENT
  Sex: Female
  Weight: 81.65 kg

DRUGS (1)
  1. FIASP [Suspect]
     Active Substance: INSULIN ASPART

REACTIONS (4)
  - Device malfunction [None]
  - Device alarm issue [None]
  - Blood glucose fluctuation [None]
  - Product use complaint [None]
